FAERS Safety Report 4572290-6 (Version None)
Quarter: 2005Q1

REPORT INFORMATION
  Report Type: 
  Country: None (occurrence: None)
  Receive Date: 20050203
  Receipt Date: 20050126
  Transmission Date: 20050727
  Serious: Yes (Hospitalization)
  Sender: FDA-Public Use
  Company Number: 2004-12-1360

PATIENT
  Age: 68 Year
  Sex: Female
  Weight: 50 kg

DRUGS (8)
  1. TEMODAL [Suspect]
     Indication: OLIGODENDROGLIOMA
     Dosage: ORAL
     Route: 048
     Dates: start: 20041202, end: 20041202
  2. ZOPHREN (ONDANSETRON) [Concomitant]
  3. DEPAKINE CHRONO (SOLDIUM VALPROATE) [Concomitant]
  4. PROZAC [Concomitant]
  5. ACETAMINOPHEN [Concomitant]
  6. OMEPRAZOLE [Concomitant]
  7. GAVISCON [Concomitant]
  8. SPASFON [Concomitant]

REACTIONS (4)
  - GASTROINTESTINAL DISORDER [None]
  - NAUSEA [None]
  - RASH [None]
  - VOMITING [None]
